FAERS Safety Report 9521441 (Version 1)
Quarter: 2013Q3

REPORT INFORMATION
  Report Type: Spontaneous
  Country: US (occurrence: US)
  Receive Date: 20130913
  Receipt Date: 20130913
  Transmission Date: 20140515
  Serious: No
  Sender: FDA-Public Use
  Company Number: US-009507513-1309USA004284

PATIENT
  Age: 15 Year
  Sex: Male

DRUGS (4)
  1. DULERA [Suspect]
     Indication: ASTHMA
     Dosage: STRENGTH: 200/5 MCRG, DOSE: TWO PUFFS TWICE A DAY.
     Route: 055
     Dates: start: 2012
  2. VENTOLIN (ALBUTEROL SULFATE) [Concomitant]
  3. NASONEX [Concomitant]
  4. ALLEGRA [Concomitant]

REACTIONS (2)
  - Therapeutic response decreased [Not Recovered/Not Resolved]
  - Product quality issue [Unknown]
